FAERS Safety Report 10666017 (Version 1)
Quarter: 2014Q4

REPORT INFORMATION
  Report Type: Spontaneous
  Country: US (occurrence: US)
  Receive Date: 20141219
  Receipt Date: 20141219
  Transmission Date: 20150529
  Serious: Yes (Other)
  Sender: FDA-Public Use
  Company Number: US-SA-2014SA173015

PATIENT
  Age: 58 Year
  Sex: Female
  Weight: 64.6 kg

DRUGS (11)
  1. DILACOR XR [Concomitant]
     Active Substance: DILTIAZEM HYDROCHLORIDE
  2. VITAMIN B12 [Concomitant]
     Active Substance: CYANOCOBALAMIN
     Dosage: UNDER THE SKIN EVERY 28 DAYS
  3. SODIUM CHLORIDE. [Concomitant]
     Active Substance: SODIUM CHLORIDE
  4. HYZAAR [Concomitant]
     Active Substance: HYDROCHLOROTHIAZIDE\LOSARTAN POTASSIUM
     Dosage: 50-12.5 MG PER TABLET
  5. VPRIV [Concomitant]
     Active Substance: VELAGLUCERASE ALFA
     Indication: GAUCHER^S DISEASE
     Dates: start: 2011, end: 201404
  6. BENADRYL [Concomitant]
     Active Substance: DIPHENHYDRAMINE HYDROCHLORIDE
     Dates: start: 2014
  7. CLARITIN [Concomitant]
     Active Substance: LORATADINE
     Indication: PREMEDICATION
     Dates: start: 2014
  8. CEREZYME [Suspect]
     Active Substance: IMIGLUCERASE
     Indication: GAUCHER^S DISEASE
     Dosage: DOSE:60 UNIT(S)/KILOGRAM BODYWEIGHT
     Route: 042
     Dates: start: 201404
  9. VITAMIN D [Concomitant]
     Active Substance: CHOLECALCIFEROL
     Dosage: DOSE:1000 UNIT(S)
     Route: 048
  10. CEREZYME [Suspect]
     Active Substance: IMIGLUCERASE
     Indication: GAUCHER^S DISEASE
     Route: 042
     Dates: start: 1998, end: 2011
  11. TUMS [Concomitant]
     Active Substance: CALCIUM CARBONATE
     Route: 048

REACTIONS (10)
  - Lumbar radiculopathy [Unknown]
  - Renal cyst [Recovered/Resolved]
  - Arthralgia [Unknown]
  - Rash [Unknown]
  - Intervertebral disc protrusion [Unknown]
  - Burning sensation [Unknown]
  - Back pain [Unknown]
  - Erythromelalgia [Unknown]
  - Raynaud^s phenomenon [Unknown]
  - Clear cell renal cell carcinoma [Recovered/Resolved]

NARRATIVE: CASE EVENT DATE: 2002
